FAERS Safety Report 21821445 (Version 16)
Quarter: 2024Q1

REPORT INFORMATION
  Report Type: Report from Study
  Country: US (occurrence: US)
  Receive Date: 20230105
  Receipt Date: 20240312
  Transmission Date: 20240410
  Serious: Yes (Other)
  Sender: FDA-Public Use
  Company Number: US-002147023-NVSC2023US001500

PATIENT
  Age: 53 Year
  Sex: Female

DRUGS (1)
  1. KESIMPTA [Suspect]
     Active Substance: OFATUMUMAB
     Indication: Multiple sclerosis
     Dosage: 20 MG, QW (DOSAGE 0.4 ML)
     Route: 058
     Dates: start: 20230102

REACTIONS (14)
  - Hypothyroidism [Unknown]
  - Fatigue [Recovering/Resolving]
  - Nephropathy [Unknown]
  - Brain fog [Unknown]
  - Migraine [Recovered/Resolved]
  - Insomnia [Recovered/Resolved]
  - Pain [Recovered/Resolved]
  - Pain [Unknown]
  - Anaemia [Not Recovered/Not Resolved]
  - Fatigue [Recovered/Resolved]
  - Lethargy [Unknown]
  - Influenza [Unknown]
  - Headache [Not Recovered/Not Resolved]
  - Product supply issue [Unknown]

NARRATIVE: CASE EVENT DATE: 20230102
